FAERS Safety Report 4300663-5 (Version None)
Quarter: 2004Q1

REPORT INFORMATION
  Report Type: 
  Country: None (occurrence: None)
  Receive Date: 20040219
  Receipt Date: 20040219
  Transmission Date: 20041129
  Serious: Yes (Hospitalization)
  Sender: FDA-Public Use
  Company Number: None

PATIENT
  Age: 5 Year
  Sex: Female
  Weight: 21.4 kg

DRUGS (2)
  1. METHOTREXATE [Suspect]
     Indication: ACUTE LYMPHOCYTIC LEUKAEMIA
     Dosage: IV MTX EVERY 10 DAYS (ON DAY 10 - 120MG, DAY 20- 160 MG, DAY 30- 200MG, + DAY 40 -240 MG
     Route: 042
     Dates: start: 20040129, end: 20040325
  2. VINCRISTINE [Concomitant]

REACTIONS (3)
  - HAEMATEMESIS [None]
  - PHARYNGOLARYNGEAL PAIN [None]
  - STOMATITIS [None]
